FAERS Safety Report 9432804 (Version 1)
Quarter: 2013Q3

REPORT INFORMATION
  Report Type: Spontaneous
  Country: CN (occurrence: CN)
  Receive Date: 20130729
  Receipt Date: 20130729
  Transmission Date: 20140515
  Serious: Yes (Other)
  Sender: FDA-Public Use
  Company Number: CN-JNJFOC-20130617613

PATIENT
  Sex: 0

DRUGS (2)
  1. DECITABINE [Suspect]
     Indication: MYELODYSPLASTIC SYNDROME
     Dosage: , IN 1 CYCLICAL, INTRAVENOUS
     Route: 042
  2. DECITABINE [Suspect]
     Indication: ACUTE MYELOID LEUKAEMIA
     Dosage: , IN 1 CYCLICAL, INTRAVENOUS
     Route: 042

REACTIONS (10)
  - Lung infection [None]
  - Bone marrow failure [None]
  - Pyrexia [None]
  - Haemorrhage [None]
  - Nausea [None]
  - Vomiting [None]
  - Asthenia [None]
  - Diarrhoea [None]
  - Febrile neutropenia [None]
  - Infection [None]
